FAERS Safety Report 19113375 (Version 1)
Quarter: 2021Q2

REPORT INFORMATION
  Report Type: Spontaneous
  Country: US (occurrence: US)
  Receive Date: 20210408
  Receipt Date: 20210408
  Transmission Date: 20210717
  Serious: No
  Sender: FDA-Public Use
  Company Number: US-ELI_LILLY_AND_COMPANY-US202104002259

PATIENT
  Age: 65 Year
  Sex: Female

DRUGS (1)
  1. BAMLANIVIMAB. [Suspect]
     Active Substance: BAMLANIVIMAB
     Indication: COVID-19
     Dosage: UNK UNK, UNKNOWN
     Route: 042
     Dates: start: 20210120, end: 20210120

REACTIONS (5)
  - Influenza [Recovered/Resolved]
  - Arthralgia [Recovering/Resolving]
  - Pyrexia [Recovered/Resolved]
  - Pain [Recovering/Resolving]
  - Pain in extremity [Recovered/Resolved]

NARRATIVE: CASE EVENT DATE: 20210122
